FAERS Safety Report 7981629-0 (Version None)
Quarter: 2011Q4

REPORT INFORMATION
  Report Type: 
  Country: None (occurrence: None)
  Receive Date: 20111215
  Receipt Date: 20111205
  Transmission Date: 20120403
  Serious: Yes (Hospitalization, Other)
  Sender: FDA-Public Use
  Company Number: US-BRISTOL-MYERS SQUIBB COMPANY-16271116

PATIENT
  Age: 64 Year
  Sex: Male
  Weight: 91 kg

DRUGS (10)
  1. DEXLANSOPRAZOLE [Concomitant]
     Dates: start: 20040101
  2. COREG [Concomitant]
     Dates: start: 20040101
  3. EFFEXOR XR [Concomitant]
     Dates: start: 20040101
  4. COUMADIN [Suspect]
  5. ACETYLSALICYLIC ACID SRT [Concomitant]
     Dates: start: 20040101
  6. SEROQUEL [Concomitant]
     Dosage: SEROQUEL XR 200MG QHS.
     Dates: start: 20040101
  7. LIPITOR [Concomitant]
     Dates: start: 20040101
  8. ZOLPIDEM [Concomitant]
     Indication: SLEEP DISORDER
     Dates: start: 20040101
  9. ENALAPRIL MALEATE [Concomitant]
     Dates: start: 20040101
  10. CLONAZEPAM [Concomitant]
     Dates: start: 20040101

REACTIONS (3)
  - MITRAL VALVE PROLAPSE [None]
  - CEREBROVASCULAR ACCIDENT [None]
  - HEAD AND NECK CANCER [None]
